FAERS Safety Report 11176057 (Version 1)
Quarter: 2015Q2

REPORT INFORMATION
  Report Type: Spontaneous
  Country: DE (occurrence: DE)
  Receive Date: 20150609
  Receipt Date: 20150609
  Transmission Date: 20150821
  Serious: Yes (Death)
  Sender: FDA-Public Use
  Company Number: GXKR2015DE002726

PATIENT

DRUGS (6)
  1. PACLITAXEL. [Suspect]
     Active Substance: PACLITAXEL
     Dosage: 101.4 MG, UNK
     Route: 042
     Dates: start: 20150507, end: 20150515
  2. PACLITAXEL. [Suspect]
     Active Substance: PACLITAXEL
     Indication: OVARIAN CANCER
     Dosage: 101.4 MG, UNK
     Route: 042
     Dates: start: 20150423, end: 20150430
  3. PACLITAXEL. [Suspect]
     Active Substance: PACLITAXEL
     Dosage: 101.4 MG, UNK
     Route: 042
     Dates: start: 20150430
  4. LONQUEX [Concomitant]
     Active Substance: LIPEGFILGRASTIM
     Indication: PROPHYLAXIS
     Dosage: 6 MG, UNK
     Route: 058
     Dates: start: 20150424
  5. PACLITAXEL. [Suspect]
     Active Substance: PACLITAXEL
     Dosage: 101.4 MG, UNK
     Route: 042
     Dates: start: 20150515
  6. LONQUEX [Concomitant]
     Active Substance: LIPEGFILGRASTIM
     Dosage: 6 MG, UNK
     Route: 058
     Dates: start: 20150516

REACTIONS (3)
  - Death [Fatal]
  - Pulmonary hypertension [Fatal]
  - Pleural effusion [Fatal]

NARRATIVE: CASE EVENT DATE: 20150525
